FAERS Safety Report 24382077 (Version 2)
Quarter: 2024Q4

REPORT INFORMATION
  Report Type: Report from Study
  Country: CA (occurrence: CA)
  Receive Date: 20241001
  Receipt Date: 20241218
  Transmission Date: 20250114
  Serious: Yes (Hospitalization)
  Sender: ABBVIE
  Company Number: CA-ABBVIE-5749033

PATIENT
  Sex: Female

DRUGS (2)
  1. SKYRIZI [Suspect]
     Active Substance: RISANKIZUMAB-RZAA
     Indication: Crohn^s disease
     Route: 058
     Dates: start: 20230224
  2. PREDNISONE [Concomitant]
     Active Substance: PREDNISONE
     Indication: Product used for unknown indication
     Route: 065

REACTIONS (14)
  - Pneumonia [Unknown]
  - Feeding disorder [Unknown]
  - Diarrhoea [Unknown]
  - Pneumonia [Unknown]
  - Incorrect dose administered [Unknown]
  - Vomiting [Unknown]
  - Immunosuppression [Unknown]
  - Lower respiratory tract infection [Unknown]
  - Device issue [Unknown]
  - Nausea [Unknown]
  - Immunodeficiency [Unknown]
  - Drug ineffective [Unknown]
  - White blood cell count decreased [Unknown]
  - Ulcer [Unknown]

NARRATIVE: CASE EVENT DATE: 20240501
